FAERS Safety Report 4647755-9 (Version None)
Quarter: 2005Q2

REPORT INFORMATION
  Report Type: 
  Country: None (occurrence: None)
  Receive Date: 20050426
  Receipt Date: 20050418
  Transmission Date: 20051028
  Serious: Yes (Hospitalization, Disabling)
  Sender: FDA-Public Use
  Company Number: 2004AP05757

PATIENT
  Age: 73 Year
  Sex: Female

DRUGS (6)
  1. IRESSA [Suspect]
     Indication: NON-SMALL CELL LUNG CANCER
     Dosage: 250 MG DAILY; PO
     Route: 048
     Dates: start: 20040214
  2. TAPAZOLE [Concomitant]
  3. LANOXIN [Concomitant]
  4. COUMADIN [Concomitant]
  5. TENORMIN [Concomitant]
  6. CIBADREX ^CIBA-GEIGY^ [Concomitant]

REACTIONS (2)
  - SKIN ULCER [None]
  - WOUND INFECTION PSEUDOMONAS [None]
